FAERS Safety Report 5511527-3 (Version None)
Quarter: 2007Q4

REPORT INFORMATION
  Report Type: 
  Country: None (occurrence: None)
  Receive Date: 20071109
  Receipt Date: 20071030
  Transmission Date: 20080405
  Serious: Yes (Hospitalization)
  Sender: FDA-Public Use
  Company Number: B0494539A

PATIENT
  Age: 86 Year
  Sex: Female

DRUGS (1)
  1. AUGMENTIN [Suspect]
     Indication: INTERSTITIAL LUNG DISEASE
     Dosage: 1G THREE TIMES PER DAY
     Route: 048
     Dates: start: 20070203, end: 20070219

REACTIONS (2)
  - ABDOMINAL PAIN [None]
  - PSEUDOMEMBRANOUS COLITIS [None]
